FAERS Safety Report 20783597 (Version 2)
Quarter: 2022Q2

REPORT INFORMATION
  Report Type: Spontaneous
  Country: US (occurrence: US)
  Receive Date: 20220504
  Receipt Date: 20220523
  Transmission Date: 20220720
  Serious: No
  Sender: FDA-Public Use
  Company Number: US-GSKCCFUS-Case-01365565_AE-78979

PATIENT
  Sex: Male

DRUGS (1)
  1. NUCALA [Suspect]
     Active Substance: MEPOLIZUMAB
     Indication: Product used for unknown indication
     Dosage: UNK, 100MG/ML 1X1ML

REACTIONS (2)
  - Exposure via skin contact [Unknown]
  - Product complaint [Unknown]
